FAERS Safety Report 10769420 (Version 1)
Quarter: 2015Q1

REPORT INFORMATION
  Report Type: Spontaneous
  Country: US (occurrence: None)
  Receive Date: 20150205
  Receipt Date: 20150205
  Transmission Date: 20150721
  Serious: Yes (Hospitalization)
  Sender: FDA-Public Use
  Company Number: None

PATIENT
  Age: 59 Year
  Sex: Male
  Weight: 82.5 kg

DRUGS (7)
  1. PLAVIX [Suspect]
     Active Substance: CLOPIDOGREL BISULFATE
     Indication: CORONARY ARTERIAL STENT INSERTION
     Dosage: CHRONIC
     Route: 048
  2. TENORMIN [Concomitant]
     Active Substance: ATENOLOL
  3. IBUPROFEN. [Suspect]
     Active Substance: IBUPROFEN
     Indication: PAIN
     Dosage: 200MG Q6HRS PRN PO?
     Route: 048
  4. AMLODIPINE [Concomitant]
     Active Substance: AMLODIPINE BESYLATE
  5. ASPIRIN. [Suspect]
     Active Substance: ASPIRIN
  6. LISINOPRIL. [Concomitant]
     Active Substance: LISINOPRIL
  7. PLAVIX [Suspect]
     Active Substance: CLOPIDOGREL BISULFATE
     Indication: CORONARY ANGIOPLASTY
     Dosage: CHRONIC
     Route: 048

REACTIONS (5)
  - Pneumonia aspiration [None]
  - Escherichia urinary tract infection [None]
  - Gastrointestinal haemorrhage [None]
  - Iron deficiency anaemia [None]
  - Alcohol use [None]

NARRATIVE: CASE EVENT DATE: 20141010
